FAERS Safety Report 25336604 (Version 2)
Quarter: 2025Q2

REPORT INFORMATION
  Report Type: Spontaneous
  Country: US (occurrence: US)
  Receive Date: 20250520
  Receipt Date: 20250520
  Transmission Date: 20250716
  Serious: No
  Sender: LEO PHARM
  Company Number: US-LEO Pharma-379256

PATIENT
  Age: 76 Year
  Sex: Female

DRUGS (1)
  1. ADBRY [Suspect]
     Active Substance: TRALOKINUMAB-LDRM
     Indication: Eczema
     Dosage: 600 MG FOR THE INITIAL DOSE THEN AT 300 MG EVERY TWO WEEKS SUBCUTANEOUSLY; HAD THE LAST INJECTION ON
     Route: 058
     Dates: start: 202502, end: 202504

REACTIONS (4)
  - Injection site swelling [Recovered/Resolved]
  - Drug ineffective [Unknown]
  - Injection site pain [Recovered/Resolved]
  - Injection site pain [Recovered/Resolved]
